FAERS Safety Report 8832249 (Version 2)
Quarter: 2012Q4

REPORT INFORMATION
  Report Type: 
  Country: US (occurrence: US)
  Receive Date: 20121009
  Receipt Date: 20121127
  Transmission Date: 20130627
  Serious: Yes (Hospitalization)
  Sender: FDA-Public Use
  Company Number: US-VERTEX PHARMACEUTICAL INC.-2012-022298

PATIENT
  Age: 18 None
  Sex: Male

DRUGS (2)
  1. VX-770 [Suspect]
     Indication: CYSTIC FIBROSIS
     Dosage: 150 mg, qd
     Route: 048
     Dates: start: 20120420, end: 2012
  2. VX-770 [Suspect]
     Dosage: 150 mg, qd
     Route: 048
     Dates: start: 2012

REACTIONS (5)
  - Lung infection [Recovered/Resolved]
  - Incorrect dose administered [Unknown]
  - Treatment noncompliance [Recovered/Resolved]
  - Cough [Not Recovered/Not Resolved]
  - Nasopharyngitis [Unknown]
